FAERS Safety Report 8063758-9 (Version None)
Quarter: 2012Q1

REPORT INFORMATION
  Report Type: 
  Country: None (occurrence: None)
  Receive Date: 20120123
  Receipt Date: 20120118
  Transmission Date: 20120608
  Serious: Yes (Hospitalization)
  Sender: FDA-Public Use
  Company Number: US-GILEAD-2011-0048630

PATIENT
  Sex: Female

DRUGS (4)
  1. LETAIRIS [Suspect]
     Indication: UNEVALUABLE EVENT
  2. LETAIRIS [Suspect]
     Indication: PULMONARY HYPERTENSION
     Dosage: 5 MG, UNK
     Route: 048
     Dates: start: 20100208
  3. LETAIRIS [Suspect]
     Indication: DERMATOMYOSITIS
  4. TYVASO [Concomitant]

REACTIONS (2)
  - RESPIRATORY FAILURE [None]
  - HYPOXIA [None]
